FAERS Safety Report 13269677 (Version 2)
Quarter: 2017Q2

REPORT INFORMATION
  Report Type: Spontaneous
  Country: US (occurrence: US)
  Receive Date: 20170224
  Receipt Date: 20170608
  Transmission Date: 20170830
  Serious: No
  Sender: FDA-Public Use
  Company Number: US-009507513-1701USA014250

PATIENT
  Sex: Female
  Weight: 80.73 kg

DRUGS (1)
  1. PRINIVIL [Suspect]
     Active Substance: LISINOPRIL
     Dosage: UNK
     Route: 048

REACTIONS (2)
  - Drug hypersensitivity [Unknown]
  - Cough [Unknown]
